FAERS Safety Report 8965153 (Version 1)
Quarter: 2012Q4

REPORT INFORMATION
  Report Type: 
  Country: US (occurrence: US)
  Receive Date: 20121213
  Receipt Date: 20121213
  Transmission Date: 20130627
  Serious: No
  Sender: FDA-Public Use
  Company Number: US-BRISTOL-MYERS SQUIBB COMPANY-16230567

PATIENT
  Age: 34 Year
  Sex: Female

DRUGS (1)
  1. IXEMPRA [Suspect]
     Dosage: 1df:34 Unit NOS; dose then reduced to 32
     Dates: start: 201004, end: 201108

REACTIONS (1)
  - Neuropathy peripheral [Unknown]
